FAERS Safety Report 18985807 (Version 1)
Quarter: 2021Q1

REPORT INFORMATION
  Report Type: Report from Study
  Country: HU (occurrence: HU)
  Receive Date: 20210309
  Receipt Date: 20210309
  Transmission Date: 20210420
  Serious: Yes (Other)
  Sender: FDA-Public Use
  Company Number: NVSC2020HU115743

PATIENT
  Age: 38 Year
  Sex: Female
  Weight: 68 kg

DRUGS (6)
  1. KISQALI [Suspect]
     Active Substance: RIBOCICLIB
     Dosage: 400 MG, QD
     Route: 065
     Dates: start: 20201027
  2. GOSERELINUM [Concomitant]
     Active Substance: GOSERELIN
     Indication: HORMONE RECEPTOR POSITIVE BREAST CANCER
     Dosage: UNK, QMO 1 AMPOULE
     Route: 058
     Dates: start: 20200409
  3. KISQALI [Suspect]
     Active Substance: RIBOCICLIB
     Indication: HORMONE RECEPTOR POSITIVE BREAST CANCER
     Dosage: 3 DF, QD
     Route: 048
     Dates: start: 20200409, end: 2020
  4. KISQALI [Suspect]
     Active Substance: RIBOCICLIB
     Dosage: 400 MG, QD
     Route: 048
     Dates: start: 20210301
  5. KISQALI [Suspect]
     Active Substance: RIBOCICLIB
     Dosage: 3 DF, QD
     Route: 048
     Dates: start: 202005, end: 2020
  6. FASLODEX [Concomitant]
     Active Substance: FULVESTRANT
     Indication: HORMONE RECEPTOR POSITIVE BREAST CANCER
     Dosage: 1 DF, QMO
     Route: 030
     Dates: start: 20200409

REACTIONS (6)
  - Neutropenia [Recovered/Resolved]
  - Neutropenia [Unknown]
  - Vomiting [Recovered/Resolved]
  - Migraine [Recovered/Resolved]
  - Herpes zoster [Recovered/Resolved]
  - Nausea [Not Recovered/Not Resolved]

NARRATIVE: CASE EVENT DATE: 2020
